FAERS Safety Report 14665231 (Version 1)
Quarter: 2018Q1

REPORT INFORMATION
  Report Type: Spontaneous
  Country: US (occurrence: US)
  Receive Date: 20180321
  Receipt Date: 20180321
  Transmission Date: 20180509
  Serious: Yes (Other)
  Sender: FDA-Public Use
  Company Number: US-009507513-1803USA008217

PATIENT
  Sex: Female

DRUGS (1)
  1. NEXPLANON [Suspect]
     Active Substance: ETONOGESTREL
     Indication: CONTRACEPTION
     Dosage: 1 IMPLANT, EVERY 3 YEARS
     Route: 059
     Dates: start: 20171226, end: 20180305

REACTIONS (3)
  - Pregnancy with implant contraceptive [Not Recovered/Not Resolved]
  - Breast feeding [Unknown]
  - Unintended pregnancy [Not Recovered/Not Resolved]
